FAERS Safety Report 12669256 (Version 1)
Quarter: 2016Q3

REPORT INFORMATION
  Report Type: Spontaneous
  Country: US (occurrence: US)
  Receive Date: 20160819
  Receipt Date: 20160819
  Transmission Date: 20161109
  Serious: No
  Sender: FDA-Public Use
  Company Number: ALCN2016US005790

PATIENT
  Age: 74 Year
  Sex: Male

DRUGS (2)
  1. DUREZOL [Suspect]
     Active Substance: DIFLUPREDNATE
     Indication: EYE SWELLING
     Dosage: UNK
     Route: 047
     Dates: start: 20160814
  2. ILEVRO [Suspect]
     Active Substance: NEPAFENAC
     Indication: EYE SWELLING
     Dosage: UNK
     Route: 047
     Dates: start: 20160814

REACTIONS (1)
  - Vomiting [Unknown]

NARRATIVE: CASE EVENT DATE: 20160817
